FAERS Safety Report 7518681-2 (Version None)
Quarter: 2011Q2

REPORT INFORMATION
  Report Type: 
  Country: None (occurrence: None)
  Receive Date: 20110602
  Receipt Date: 20110519
  Transmission Date: 20111010
  Serious: Yes (Hospitalization, Other)
  Sender: FDA-Public Use
  Company Number: PHHY2010DE50076

PATIENT
  Sex: Male

DRUGS (7)
  1. RITONAVIR [Concomitant]
  2. HEPSERA [Suspect]
     Indication: HEPATITIS B
     Dosage: UNK
     Route: 048
     Dates: start: 20080801, end: 20090801
  3. ABACAVIR SULFATE AND LAMIVUDINE [Concomitant]
  4. ADEFOVIR DIPIVOXIL KIT [Concomitant]
  5. SEBIVO [Suspect]
     Indication: HEPATITIS B
     Dosage: 600 MG
     Route: 048
     Dates: start: 20090401, end: 20100401
  6. TRUVADA [Concomitant]
  7. DARUNAVIR ETHANOLATE [Concomitant]

REACTIONS (21)
  - ANOGENITAL WARTS [None]
  - PAIN [None]
  - WEIGHT DECREASED [None]
  - FIBROSIS [None]
  - HEPATOMEGALY [None]
  - PULMONARY FUNCTION TEST DECREASED [None]
  - MYOPATHY [None]
  - NEUROPATHY PERIPHERAL [None]
  - DUODENAL ULCER [None]
  - CARBON MONOXIDE DIFFUSING CAPACITY DECREASED [None]
  - GASTRIC ULCER [None]
  - NAUSEA [None]
  - ASTHENIA [None]
  - VOMITING [None]
  - BLOOD HIV RNA INCREASED [None]
  - POLYNEUROPATHY [None]
  - MUSCLE INJURY [None]
  - GASTRITIS [None]
  - BLOOD CREATINE PHOSPHOKINASE [None]
  - DYSPLASIA [None]
  - SPLENOMEGALY [None]
